FAERS Safety Report 9189820 (Version 2)
Quarter: 2013Q2

REPORT INFORMATION
  Report Type: Spontaneous
  Country: JP (occurrence: JP)
  Receive Date: 20130326
  Receipt Date: 20130429
  Transmission Date: 20140414
  Serious: Yes (Other)
  Sender: FDA-Public Use
  Company Number: JP-PFIZER INC-2013094971

PATIENT
  Age: 61 Year
  Sex: Male

DRUGS (1)
  1. LYRICA [Suspect]
     Indication: NEURALGIA
     Dosage: 450 MG/DAY
     Route: 048

REACTIONS (3)
  - Sensory disturbance [Unknown]
  - Activities of daily living impaired [Unknown]
  - Hypoaesthesia [Recovering/Resolving]
